FAERS Safety Report 10506850 (Version 1)
Quarter: 2014Q3

REPORT INFORMATION
  Report Type: Spontaneous
  Country: US (occurrence: None)
  Receive Date: 20140915
  Receipt Date: 20140915
  Transmission Date: 20150326
  Serious: Yes (Other)
  Sender: FDA-Public Use
  Company Number: 2013-US-000119

PATIENT
  Age: 51 Year
  Sex: Female
  Weight: 74.8 kg

DRUGS (12)
  1. VITAMIN B 12 (VITAMIN B NOS) [Concomitant]
  2. MULTIVITAMINS (ASCORBIC ACID, ERGOCALCIFEROL, FOLIC ACID, NICOTINAMIDE, PANTHENOL, RETINOL, RIBOFLAVIN, THIAMINE HYDROCHLORIDE) [Concomitant]
     Active Substance: VITAMINS
  3. XYREM [Suspect]
     Active Substance: SODIUM OXYBATE
     Indication: CATAPLEXY
     Route: 048
     Dates: start: 20130802, end: 2013
  4. HYDROXYZINE (HYDROXYZINE HYDROCHLORIDE) [Concomitant]
  5. NIACIN (NICOTINIC ACID) [Concomitant]
  6. PAXIL [Concomitant]
     Active Substance: PAROXETINE HYDROCHLORIDE
  7. ASPIRIN (ACETYLSALICYLIC ACID) [Concomitant]
     Active Substance: ASPIRIN
  8. FISH OIL (FISH OIL) [Concomitant]
     Active Substance: FISH OIL
  9. LYRICA [Concomitant]
     Active Substance: PREGABALIN
  10. XYREM [Suspect]
     Active Substance: SODIUM OXYBATE
     Indication: NARCOLEPSY
     Route: 048
     Dates: start: 20130802, end: 2013
  11. FLONASE [Concomitant]
     Active Substance: FLUTICASONE PROPIONATE
  12. TRAZODONE [Concomitant]
     Active Substance: TRAZODONE HYDROCHLORIDE

REACTIONS (11)
  - Exaggerated startle response [None]
  - Fatigue [None]
  - Depression [None]
  - Urinary incontinence [None]
  - Nausea [None]
  - Asthenia [None]
  - Dysgeusia [None]
  - Feeling abnormal [None]
  - Anxiety [None]
  - Decreased appetite [None]
  - Lethargy [None]

NARRATIVE: CASE EVENT DATE: 2013
